FAERS Safety Report 5309781-6 (Version None)
Quarter: 2007Q2

REPORT INFORMATION
  Report Type: 
  Country: None (occurrence: None)
  Receive Date: 20070427
  Receipt Date: 20060427
  Transmission Date: 20071010
  Serious: No
  Sender: FDA-Public Use
  Company Number: 15218

PATIENT
  Age: 59 Year
  Sex: Female
  Weight: 58.2 kg

DRUGS (4)
  1. ZOFRAN [Suspect]
     Indication: NAUSEA
     Dosage: 32MG UNKNOWN
     Route: 042
     Dates: start: 20060405, end: 20060405
  2. DEXAMETHASONE 0.5MG TAB [Concomitant]
     Route: 042
  3. GEMZAR [Concomitant]
     Indication: CHEMOTHERAPY
  4. DOXIL [Concomitant]
     Indication: CHEMOTHERAPY

REACTIONS (4)
  - DIZZINESS [None]
  - INFUSION SITE ERYTHEMA [None]
  - PHARMACEUTICAL PRODUCT COMPLAINT [None]
  - PRURITUS [None]
